FAERS Safety Report 5638806-3 (Version None)
Quarter: 2008Q1

REPORT INFORMATION
  Report Type: 
  Country: None (occurrence: None)
  Receive Date: 20080226
  Receipt Date: 20080212
  Transmission Date: 20080703
  Serious: Yes (Other)
  Sender: FDA-Public Use
  Company Number: US-BAYER-200810633BCC

PATIENT
  Age: 58 Year
  Sex: Female
  Weight: 73 kg

DRUGS (2)
  1. RID SHAMPOO [Suspect]
     Indication: LICE INFESTATION
     Route: 061
     Dates: start: 20080128, end: 20080211
  2. RID HOUSEHOLD SPRAY [Suspect]
     Indication: LICE INFESTATION
     Dates: start: 20080128, end: 20080211

REACTIONS (3)
  - ASTHENIA [None]
  - PALPITATIONS [None]
  - VOMITING [None]
